FAERS Safety Report 14893385 (Version 2)
Quarter: 2018Q2

REPORT INFORMATION
  Report Type: Report from Study
  Country: TR (occurrence: TR)
  Receive Date: 20180514
  Receipt Date: 20180517
  Transmission Date: 20180711
  Serious: Yes (Death)
  Sender: FDA-Public Use
  Company Number: TR-PFIZER INC-2018194347

PATIENT
  Age: 36 Year
  Sex: Female
  Weight: 57 kg

DRUGS (4)
  1. LEUCOVORIN /00566701/ [Concomitant]
     Active Substance: LEUCOVORIN
     Indication: ADENOCARCINOMA GASTRIC
     Dosage: 318 MG, 1X/DAY
     Route: 042
     Dates: start: 20170531, end: 20170531
  2. AVELUMAB [Suspect]
     Active Substance: AVELUMAB
     Indication: ADENOCARCINOMA GASTRIC
     Dosage: 570 MG, (ONCE EVERY 2 WEEKS)
     Route: 042
     Dates: start: 20170907, end: 20171019
  3. OXALIPLATIN. [Suspect]
     Active Substance: OXALIPLATIN
     Indication: ADENOCARCINOMA GASTRIC
     Dosage: 135 MG, UNK
     Route: 042
     Dates: start: 20170531, end: 20170726
  4. FLUOROURACIL. [Suspect]
     Active Substance: FLUOROURACIL
     Indication: ADENOCARCINOMA GASTRIC
     Dosage: 4134 MG, ONCE EVERY 2 WEEKS
     Route: 042
     Dates: start: 20170531, end: 20170726

REACTIONS (1)
  - Death [Fatal]

NARRATIVE: CASE EVENT DATE: 20180327
